FAERS Safety Report 25348568 (Version 3)
Quarter: 2025Q2

REPORT INFORMATION
  Report Type: Spontaneous
  Country: US (occurrence: US)
  Receive Date: 20250522
  Receipt Date: 20250620
  Transmission Date: 20250717
  Serious: Yes (Other)
  Sender: BRISTOL-MYERS SQUIBB COMPANY
  Company Number: US-EXELIXIS-EXL-2025-007872

PATIENT
  Age: 67 Year
  Sex: Male

DRUGS (5)
  1. OPDIVO [Suspect]
     Active Substance: NIVOLUMAB
     Indication: Renal cell carcinoma
     Dosage: UNK, Q4WEEKS
     Route: 042
  2. OPDIVO [Suspect]
     Active Substance: NIVOLUMAB
     Dosage: UNK, Q4WEEKS
     Route: 042
  3. CABOMETYX [Suspect]
     Active Substance: CABOZANTINIB S-MALATE
     Indication: Renal cell carcinoma
     Dosage: 40 MG, QD
     Dates: start: 20250424
  4. CABOMETYX [Suspect]
     Active Substance: CABOZANTINIB S-MALATE
     Dates: start: 20250519
  5. CABOMETYX [Suspect]
     Active Substance: CABOZANTINIB S-MALATE
     Dosage: 40 MG, QOD
     Dates: start: 20250530

REACTIONS (15)
  - Pneumonitis [Unknown]
  - Decreased appetite [Unknown]
  - Emphysema [Unknown]
  - Skin disorder [Unknown]
  - Weight decreased [Unknown]
  - Hyperkeratosis [Unknown]
  - Gastrointestinal motility disorder [Unknown]
  - Blister [Unknown]
  - Paraesthesia [Unknown]
  - Back pain [Unknown]
  - Blood pressure increased [Recovering/Resolving]
  - Red cell distribution width abnormal [Unknown]
  - Pain [Recovering/Resolving]
  - Diarrhoea [Unknown]
  - Dizziness [Unknown]

NARRATIVE: CASE EVENT DATE: 20250501
